FAERS Safety Report 9466296 (Version 2)
Quarter: 2013Q3

REPORT INFORMATION
  Report Type: Spontaneous
  Country: DE (occurrence: DE)
  Receive Date: 20130820
  Receipt Date: 20130820
  Transmission Date: 20140515
  Serious: Yes (Disabling)
  Sender: FDA-Public Use
  Company Number: DE-PFIZER INC-2013229669

PATIENT
  Age: 53 Year
  Sex: Male

DRUGS (1)
  1. DELIX [Suspect]
     Dosage: 5 MG, 2X/DAY
     Route: 048
     Dates: start: 20000201, end: 20130701

REACTIONS (1)
  - Dermatitis herpetiformis [Recovering/Resolving]
